FAERS Safety Report 4474825-0 (Version None)
Quarter: 2004Q4

REPORT INFORMATION
  Report Type: 
  Country: None (occurrence: None)
  Receive Date: 20041014
  Receipt Date: 20040906
  Transmission Date: 20050328
  Serious: Yes (Hospitalization, Other)
  Sender: FDA-Public Use
  Company Number: JP-MERCK-0409USA00719

PATIENT
  Age: 75 Year
  Sex: Male
  Weight: 47 kg

DRUGS (8)
  1. ATELEC [Concomitant]
     Indication: HYPERTENSION
     Route: 048
     Dates: start: 19960101
  2. TETRAMIDE [Concomitant]
     Indication: DEMENTIA
     Route: 048
     Dates: start: 20040201
  3. SERMION [Concomitant]
     Indication: DEMENTIA
     Route: 048
     Dates: start: 20040201
  4. ZOCOR [Suspect]
     Indication: HYPERLIPIDAEMIA
     Route: 048
     Dates: start: 19960101, end: 20040901
  5. HALCION [Concomitant]
     Indication: INSOMNIA
     Route: 048
     Dates: start: 19960101
  6. BASEN [Concomitant]
     Indication: DIABETES MELLITUS
     Route: 048
     Dates: start: 19960101
  7. AMOBAN [Concomitant]
     Indication: INSOMNIA
     Route: 048
     Dates: start: 20040201
  8. BLOPRESS [Concomitant]
     Indication: HYPERTENSION
     Route: 048
     Dates: start: 19960101

REACTIONS (3)
  - ASTHENIA [None]
  - DIFFICULTY IN WALKING [None]
  - RHABDOMYOLYSIS [None]
